FAERS Safety Report 7334717-6 (Version None)
Quarter: 2011Q1

REPORT INFORMATION
  Report Type: 
  Country: None (occurrence: None)
  Receive Date: 20110307
  Receipt Date: 20110221
  Transmission Date: 20110831
  Serious: Yes (Other)
  Sender: FDA-Public Use
  Company Number: PHHY2011BR15273

PATIENT
  Sex: Female

DRUGS (3)
  1. LEVEMIR [Concomitant]
     Indication: DIABETES MELLITUS
     Dosage: 14 UNITS A DAY
  2. DIOVAN AMLO FIX [Suspect]
     Indication: HYPERTENSION
     Dosage: 320/5 MG, 1 TABLET DAILY
     Dates: start: 20030101
  3. NOVOMIX [Concomitant]
     Indication: DIABETES MELLITUS
     Dosage: 14 UNITS A DAY, (A MIXTURE OF INSULIN ASPART 30% AND PROTAMINE INSULIN ASPART 70%)

REACTIONS (3)
  - CEREBROVASCULAR ACCIDENT [None]
  - DIABETIC NEUROPATHY [None]
  - RENAL IMPAIRMENT [None]
